FAERS Safety Report 19460295 (Version 1)
Quarter: 2021Q2

REPORT INFORMATION
  Report Type: Report from Study
  Country: IT (occurrence: IT)
  Receive Date: 20210625
  Receipt Date: 20210625
  Transmission Date: 20210717
  Serious: Yes (Other)
  Sender: FDA-Public Use
  Company Number: IT-TEVA-2021-IT-1925415

PATIENT
  Age: 79 Year
  Sex: Male

DRUGS (5)
  1. AMPICILLINA/SULBACTAM [Concomitant]
     Indication: URINARY TRACT INFECTION
  2. SILODOSIN. [Concomitant]
     Active Substance: SILODOSIN
  3. PANTORC 40 MG COMPRESSE GASTRORESISTENTI [Concomitant]
  4. TICLOPIDINE [Suspect]
     Active Substance: TICLOPIDINE
     Dosage: 250MILLIGRAM
     Route: 048
  5. OLMETEC 20 MG COMPRESSE RIVESTITE CON FILM [Concomitant]

REACTIONS (1)
  - Melaena [Not Recovered/Not Resolved]

NARRATIVE: CASE EVENT DATE: 20210514
